FAERS Safety Report 7298720-7 (Version None)
Quarter: 2011Q1

REPORT INFORMATION
  Report Type: 
  Country: None (occurrence: None)
  Receive Date: 20110217
  Receipt Date: 20110211
  Transmission Date: 20110831
  Serious: Yes (Hospitalization, Other)
  Sender: FDA-Public Use
  Company Number: FR-PFIZER INC-2011031906

PATIENT
  Age: 62 Year
  Sex: Female

DRUGS (6)
  1. EFFEXOR XR [Suspect]
     Dosage: 37.5 MG, 1X/DAY
     Dates: start: 20100901, end: 20110212
  2. EFFEXOR XR [Suspect]
     Dosage: 37.5 MG, 1X/DAY
     Dates: start: 20091001, end: 20091201
  3. EFFEXOR XR [Suspect]
     Indication: GENERALISED ANXIETY DISORDER
     Dosage: 75 MG, 2X/DAY
     Dates: start: 20080701, end: 20090201
  4. EFFEXOR XR [Suspect]
     Dosage: 75 MG, 1X/DAY
     Dates: start: 20091201, end: 20100801
  5. EFFEXOR XR [Suspect]
     Dosage: 112.5 MG, DAILY
     Dates: start: 20090201, end: 20090401
  6. EFFEXOR XR [Suspect]
     Dosage: 75 MG, 1X/DAY
     Dates: start: 20090401, end: 20091001

REACTIONS (3)
  - PNEUMONIA BACTERIAL [None]
  - INTERSTITIAL LUNG DISEASE [None]
  - GENERALISED ANXIETY DISORDER [None]
